FAERS Safety Report 18708517 (Version 7)
Quarter: 2024Q2

REPORT INFORMATION
  Report Type: Report from Study
  Country: AU (occurrence: AU)
  Receive Date: 20210106
  Receipt Date: 20240404
  Transmission Date: 20240716
  Serious: Yes (Hospitalization)
  Sender: FDA-Public Use
  Company Number: NVSC2021AU000612

PATIENT
  Age: 66 Year
  Sex: Female

DRUGS (6)
  1. MAYZENT [Suspect]
     Active Substance: SIPONIMOD
     Indication: Secondary progressive multiple sclerosis
     Dosage: 2 MG, QD
     Route: 048
     Dates: start: 20201224
  2. MAYZENT [Suspect]
     Active Substance: SIPONIMOD
     Dosage: 1 MG, QD (4 TABLETS)
     Route: 048
     Dates: start: 20201224
  3. MAYZENT [Suspect]
     Active Substance: SIPONIMOD
     Dosage: UNK
     Route: 065
     Dates: end: 20210106
  4. MAYZENT [Suspect]
     Active Substance: SIPONIMOD
     Dosage: 1 MG, QD
     Route: 048
     Dates: start: 20210120
  5. MAYZENT [Suspect]
     Active Substance: SIPONIMOD
     Dosage: 0.75 MG, QD (3 TABLETS)
     Route: 048
     Dates: start: 20210325
  6. MAYZENT [Suspect]
     Active Substance: SIPONIMOD
     Dosage: 1 MG, QD
     Route: 048
     Dates: start: 20210401

REACTIONS (6)
  - Migraine [Unknown]
  - Nausea [Unknown]
  - Headache [Unknown]
  - Incorrect dose administered [Unknown]
  - Product storage error [Recovered/Resolved]
  - Lymphocyte count decreased [Unknown]

NARRATIVE: CASE EVENT DATE: 20201229
